FAERS Safety Report 9669210 (Version 2)
Quarter: 2013Q4

REPORT INFORMATION
  Report Type: Spontaneous
  Country: DE (occurrence: DE)
  Receive Date: 20131105
  Receipt Date: 20131105
  Transmission Date: 20140711
  Serious: Yes (Other)
  Sender: FDA-Public Use
  Company Number: DE-JNJFOC-20130914023

PATIENT
  Age: 88 Year
  Sex: Female
  Weight: 50 kg

DRUGS (10)
  1. XARELTO [Suspect]
     Indication: CEREBROVASCULAR ACCIDENT PROPHYLAXIS
     Route: 048
     Dates: start: 201309, end: 201309
  2. XARELTO [Suspect]
     Indication: CEREBROVASCULAR ACCIDENT PROPHYLAXIS
     Route: 048
     Dates: start: 201307, end: 201309
  3. XARELTO [Suspect]
     Indication: ATRIAL FIBRILLATION
     Route: 048
     Dates: start: 201309, end: 201309
  4. XARELTO [Suspect]
     Indication: ATRIAL FIBRILLATION
     Route: 048
     Dates: start: 201307, end: 201309
  5. DIGITOXIN [Concomitant]
     Indication: ATRIAL FIBRILLATION
     Route: 048
  6. PANTOPRAZOLE [Concomitant]
     Route: 048
  7. ISOPTIN [Concomitant]
     Indication: ATRIAL FIBRILLATION
     Route: 048
  8. FUROSEMID [Concomitant]
     Indication: RENAL FAILURE
     Route: 048
  9. L-THYROXIN [Concomitant]
     Route: 065
  10. CALCIMAGON-D3 [Concomitant]
     Route: 065

REACTIONS (5)
  - Haemorrhage [Recovered/Resolved]
  - Thrombosis [Recovered/Resolved]
  - Haematoma [Recovered/Resolved]
  - Oedema peripheral [Recovered/Resolved]
  - Fibrin D dimer increased [Recovered/Resolved]
